FAERS Safety Report 4856484-8 (Version None)
Quarter: 2005Q4

REPORT INFORMATION
  Report Type: 
  Country: None (occurrence: None)
  Receive Date: 20051215
  Receipt Date: 20051209
  Transmission Date: 20060501
  Serious: Yes (Hospitalization)
  Sender: FDA-Public Use
  Company Number: FRWYE219109DEC05

PATIENT
  Age: 51 Year
  Sex: Male

DRUGS (4)
  1. EFFEXOR [Suspect]
     Indication: DEPRESSION
     Dosage: 1 DOSE 1X PER 1 DAY ORAL
     Route: 048
     Dates: start: 20050825, end: 20051025
  2. ALCOHOL (ETHANOL, , 0) [Suspect]
     Dosage: PROBABLE EXAGGERATION OF ALCOHOL CONSUMPTION ORAL
     Route: 048
  3. PRAVASTATIN [Concomitant]
  4. OLMETEC (OLMESARTAN MEDOXOMIL) [Concomitant]

REACTIONS (12)
  - CHOLANGITIS [None]
  - CHOLELITHIASIS [None]
  - CONDITION AGGRAVATED [None]
  - HYPERCHOLESTEROLAEMIA [None]
  - HYPERTRIGLYCERIDAEMIA [None]
  - HYPOALBUMINAEMIA [None]
  - HYPONATRAEMIA [None]
  - IMMUNOGLOBULINS INCREASED [None]
  - LIPASE INCREASED [None]
  - PYREXIA [None]
  - THROMBOCYTOPENIA [None]
  - TRANSAMINASES INCREASED [None]
